FAERS Safety Report 6807388-2 (Version None)
Quarter: 2010Q2

REPORT INFORMATION
  Report Type: 
  Country: None (occurrence: None)
  Receive Date: 20100629
  Receipt Date: 20081011
  Transmission Date: 20101027
  Serious: Yes (Other)
  Sender: FDA-Public Use
  Company Number: US-PFIZER INC-2008074790

PATIENT
  Sex: Female
  Weight: 81.8 kg

DRUGS (4)
  1. ARTHROTEC [Suspect]
     Indication: INTERVERTEBRAL DISC DISORDER
     Dosage: 75 MG / 200 MCG
     Dates: start: 20080825, end: 20080801
  2. ARTHROTEC [Suspect]
     Dosage: 75 MG / 200 MCG
     Dates: start: 20080831
  3. ZOCOR [Concomitant]
     Indication: HYPERCHOLESTEROLAEMIA
  4. LUNESTA [Concomitant]

REACTIONS (1)
  - UTERINE HAEMORRHAGE [None]
